FAERS Safety Report 23848550 (Version 3)
Quarter: 2024Q4

REPORT INFORMATION
  Report Type: Spontaneous
  Country: SE (occurrence: SE)
  Receive Date: 20240513
  Receipt Date: 20241022
  Transmission Date: 20250115
  Serious: Yes (Disabling, Other)
  Sender: ELI LILLY AND COMPANY
  Company Number: None

PATIENT
  Age: 63 Year
  Sex: Male
  Weight: 68 kg

DRUGS (8)
  1. RETEVMO [Suspect]
     Active Substance: SELPERCATINIB
     Indication: Medullary thyroid cancer
     Dosage: 120 MG, DAILY
     Route: 048
     Dates: start: 20240325, end: 20240402
  2. RETEVMO [Suspect]
     Active Substance: SELPERCATINIB
     Indication: RET gene mutation
  3. CALCITUGG [Concomitant]
     Indication: Product used for unknown indication
     Dosage: 500 MG, BID
     Route: 065
  4. CALCITUGG [Concomitant]
     Dosage: 1250 MG, UNKNOWN
  5. LEVOTHYROXINE SODIUM [Concomitant]
     Active Substance: LEVOTHYROXINE SODIUM
     Indication: Product used for unknown indication
     Dosage: 100 UG, UNKNOWN
     Route: 048
  6. GABAPENTIN [Concomitant]
     Active Substance: GABAPENTIN
     Indication: Product used for unknown indication
     Dosage: 100 MG, BID
     Route: 048
  7. ZOPICLONE [Concomitant]
     Active Substance: ZOPICLONE
     Indication: Product used for unknown indication
     Dosage: 7.5 MG, DAILY
  8. ALFACALCIDOL [Concomitant]
     Active Substance: ALFACALCIDOL
     Indication: Product used for unknown indication
     Dosage: 0.5 UG, BID
     Route: 048

REACTIONS (9)
  - Anaemia [Unknown]
  - N-terminal prohormone brain natriuretic peptide increased [Unknown]
  - Hypoalbuminaemia [Recovered/Resolved]
  - Dyspnoea exertional [Not Recovered/Not Resolved]
  - Swelling face [Recovered/Resolved]
  - Oliguria [Recovered/Resolved]
  - Pulmonary hypertension [Not Recovered/Not Resolved]
  - Oedema [Not Recovered/Not Resolved]
  - Peripheral swelling [Recovered/Resolved]

NARRATIVE: CASE EVENT DATE: 20240330
